FAERS Safety Report 17429703 (Version 1)
Quarter: 2020Q1

REPORT INFORMATION
  Report Type: Spontaneous
  Country: IL (occurrence: IL)
  Receive Date: 20200218
  Receipt Date: 20200218
  Transmission Date: 20200409
  Serious: Yes (Other)
  Sender: FDA-Public Use
  Company Number: IL-AMGEN-ISRSP2020025259

PATIENT
  Sex: Female

DRUGS (3)
  1. CINACALCET HCL [Suspect]
     Active Substance: CINACALCET HYDROCHLORIDE
     Indication: HYPERPARATHYROIDISM SECONDARY
     Dosage: 0.35 MG/KG QD
     Route: 065
  2. CINACALCET HCL [Suspect]
     Active Substance: CINACALCET HYDROCHLORIDE
     Dosage: INCREASE DOSE UP TO 7.5 MG/KG QD
     Route: 065
  3. CALCITONIN [Concomitant]
     Active Substance: CALCITONIN
     Indication: HYPERPARATHYROIDISM SECONDARY
     Dosage: UNK

REACTIONS (4)
  - Hypocalcaemia [Recovered/Resolved]
  - Off label use [Unknown]
  - Hypoparathyroidism [Unknown]
  - Bone deformity [Unknown]
